FAERS Safety Report 5286144-3 (Version None)
Quarter: 2007Q2

REPORT INFORMATION
  Report Type: 
  Country: None (occurrence: None)
  Receive Date: 20070404
  Receipt Date: 20070323
  Transmission Date: 20071010
  Serious: Yes (Death)
  Sender: FDA-Public Use
  Company Number: ES-AVENTIS-200712615GDDC

PATIENT
  Age: 69 Year
  Sex: Male
  Weight: 90 kg

DRUGS (6)
  1. CALSYNAR                           /00371903/ [Suspect]
     Route: 030
     Dates: start: 20061001, end: 20061204
  2. TRADONAL [Concomitant]
     Route: 048
     Dates: start: 20060901
  3. PLAVIX [Concomitant]
     Route: 048
     Dates: start: 20050201
  4. ACOVIL [Concomitant]
     Route: 048
     Dates: start: 20050201
  5. ADIRO [Concomitant]
     Route: 048
     Dates: start: 20050201
  6. SPIRIVA [Concomitant]
     Dosage: DOSE: UNK
     Route: 055
     Dates: start: 20000101

REACTIONS (4)
  - ANAPHYLACTIC SHOCK [None]
  - BRONCHOSPASM [None]
  - DEATH [None]
  - LARYNGEAL OEDEMA [None]
